FAERS Safety Report 5275014-2 (Version None)
Quarter: 2007Q1

REPORT INFORMATION
  Report Type: 
  Country: None (occurrence: None)
  Receive Date: 20070325
  Receipt Date: 20070316
  Transmission Date: 20070707
  Serious: Yes (Hospitalization)
  Sender: FDA-Public Use
  Company Number: JP-ALLERGAN-0702856US

PATIENT
  Sex: Male

DRUGS (3)
  1. ALESION TABLET [Suspect]
     Indication: RHINITIS ALLERGIC
     Route: 048
     Dates: start: 20070209, end: 20070301
  2. GASTER [Concomitant]
     Indication: ABDOMINAL PAIN UPPER
     Route: 048
     Dates: start: 20070305
  3. BUSCOPAN [Concomitant]
     Indication: ABDOMINAL PAIN UPPER
     Dosage: 20 MG, UNK
     Route: 042
     Dates: start: 20070305

REACTIONS (1)
  - HEPATIC FUNCTION ABNORMAL [None]
